FAERS Safety Report 23772118 (Version 1)
Quarter: 2024Q2

REPORT INFORMATION
  Report Type: Spontaneous
  Country: GB (occurrence: GB)
  Receive Date: 20240423
  Receipt Date: 20240423
  Transmission Date: 20240716
  Serious: Yes (Other)
  Sender: FDA-Public Use
  Company Number: GB-AUROBINDO-AUR-APL-2024-017693

PATIENT
  Age: 67 Year
  Sex: Female

DRUGS (2)
  1. ALENDRONIC ACID [Suspect]
     Active Substance: ALENDRONIC ACID
     Indication: Osteoporosis
     Dosage: 70 MILLIGRAM, ONCE WEEKLY
     Route: 048
     Dates: start: 2018
  2. CALCI D [Concomitant]
     Indication: Product used for unknown indication
     Dosage: UNK, 1000MG/1,000UNIT ONCE DAILY
     Route: 065
     Dates: start: 2018

REACTIONS (2)
  - Spinal fracture [Unknown]
  - Drug ineffective [Unknown]
